FAERS Safety Report 12544309 (Version 2)
Quarter: 2016Q3

REPORT INFORMATION
  Report Type: Spontaneous
  Country: ES (occurrence: ES)
  Receive Date: 20160711
  Receipt Date: 20160721
  Transmission Date: 20161109
  Serious: Yes (Hospitalization, Other)
  Sender: FDA-Public Use
  Company Number: ES-SUN PHARMACEUTICAL INDUSTRIES LTD-2016RR-119513

PATIENT
  Age: 77 Year
  Sex: Female

DRUGS (6)
  1. DULOXETINE. [Suspect]
     Active Substance: DULOXETINE
     Indication: BIPOLAR DISORDER
     Route: 065
  2. PHENELZINE [Interacting]
     Active Substance: PHENELZINE
     Indication: DEPRESSION
  3. PHENELZINE [Interacting]
     Active Substance: PHENELZINE
     Indication: BIPOLAR DISORDER
     Route: 065
  4. DULOXETINE. [Interacting]
     Active Substance: DULOXETINE
     Indication: DEPRESSION
  5. OLANZAPINE. [Interacting]
     Active Substance: OLANZAPINE
     Indication: BIPOLAR DISORDER
     Route: 065
  6. OLANZAPINE. [Interacting]
     Active Substance: OLANZAPINE
     Indication: DEPRESSION

REACTIONS (2)
  - Drug interaction [Unknown]
  - Serotonin syndrome [Recovered/Resolved]
